FAERS Safety Report 5306637-X (Version None)
Quarter: 2007Q2

REPORT INFORMATION
  Report Type: 
  Country: None (occurrence: None)
  Receive Date: 20070424
  Receipt Date: 20070412
  Transmission Date: 20071010
  Serious: Yes (Other)
  Sender: FDA-Public Use
  Company Number: SE-PFIZER INC-2007029813

PATIENT
  Age: 70 Year
  Sex: Female

DRUGS (4)
  1. LYRICA [Suspect]
     Indication: DEPRESSION
     Route: 048
     Dates: start: 20070117, end: 20070121
  2. LYRICA [Suspect]
     Indication: NEURALGIA
  3. WARAN [Suspect]
     Route: 048
  4. METOPROLOL SUCCINATE [Concomitant]

REACTIONS (2)
  - HAEMATOMA [None]
  - UTERINE HAEMORRHAGE [None]
